FAERS Safety Report 5038850-3 (Version None)
Quarter: 2006Q2

REPORT INFORMATION
  Report Type: 
  Country: None (occurrence: None)
  Receive Date: 20060627
  Receipt Date: 20060627
  Transmission Date: 20061013
  Serious: Yes (Hospitalization)
  Sender: FDA-Public Use
  Company Number: None

PATIENT
  Age: 73 Year
  Sex: Male
  Weight: 53.978 kg

DRUGS (1)
  1. WARFARIN SODIUM [Suspect]
     Dosage: ALTERNATING DOSE 6 MG PO X 3 DAYS THEN 7 MG X 1 DAY THEN REPEAT
     Route: 048

REACTIONS (1)
  - INTERNATIONAL NORMALISED RATIO INCREASED [None]
